FAERS Safety Report 9164579 (Version 1)
Quarter: 2013Q1

REPORT INFORMATION
  Report Type: Spontaneous
  Country: US (occurrence: US)
  Receive Date: 20130315
  Receipt Date: 20130315
  Transmission Date: 20140127
  Serious: No
  Sender: FDA-Public Use
  Company Number: PHEH2013US006016

PATIENT
  Age: 60 Year
  Sex: Female
  Weight: 81.63 kg

DRUGS (1)
  1. TASIGNA [Suspect]
     Indication: CHRONIC MYELOID LEUKAEMIA
     Dosage: 2 DF, BID
     Route: 048
     Dates: start: 20120604, end: 20130311

REACTIONS (3)
  - Pruritus [Unknown]
  - Rash [Unknown]
  - Urticaria [Unknown]
